FAERS Safety Report 14101388 (Version 2)
Quarter: 2017Q4

REPORT INFORMATION
  Report Type: Spontaneous
  Country: RU (occurrence: RU)
  Receive Date: 20171018
  Receipt Date: 20171024
  Transmission Date: 20180321
  Serious: Yes (Hospitalization, Other)
  Sender: FDA-Public Use
  Company Number: RU-ASTRAZENECA-2017SF05099

PATIENT
  Age: 77 Year
  Sex: Male
  Weight: 67 kg

DRUGS (4)
  1. PRESTARIUM [Concomitant]
     Active Substance: PERINDOPRIL
  2. BRILINTA [Suspect]
     Active Substance: TICAGRELOR
     Indication: MYOCARDIAL INFARCTION
     Route: 048
     Dates: start: 201503
  3. BISOPROLOL [Concomitant]
     Active Substance: BISOPROLOL
  4. CARDIOMAGNYL [Concomitant]
     Active Substance: ASPIRIN\MAGNESIUM HYDROXIDE

REACTIONS (5)
  - Dyspnoea [Recovered/Resolved]
  - Contusion [Not Recovered/Not Resolved]
  - Off label use [Not Recovered/Not Resolved]
  - Product use issue [Unknown]
  - Chest pain [Recovered/Resolved]

NARRATIVE: CASE EVENT DATE: 201602
